FAERS Safety Report 26072021 (Version 1)
Quarter: 2025Q4

REPORT INFORMATION
  Report Type: Spontaneous
  Country: EU (occurrence: EU)
  Receive Date: 20251120
  Receipt Date: 20251120
  Transmission Date: 20260117
  Serious: Yes (Hospitalization)
  Sender: MYLAN
  Company Number: None

PATIENT
  Age: 69 Year
  Sex: Male

DRUGS (12)
  1. GABAPENTIN [Suspect]
     Active Substance: GABAPENTIN
     Indication: Product used for unknown indication
     Dosage: 600 MILLIGRAM, BID (TWICE DAILY IN THE EVENING) (1200 MG, QD)
     Dates: start: 20240615
  2. GABAPENTIN [Suspect]
     Active Substance: GABAPENTIN
     Dosage: 600 MILLIGRAM, BID (TWICE DAILY IN THE EVENING) (1200 MG, QD)
     Route: 048
     Dates: start: 20240615
  3. GABAPENTIN [Suspect]
     Active Substance: GABAPENTIN
     Dosage: 600 MILLIGRAM, BID (TWICE DAILY IN THE EVENING) (1200 MG, QD)
     Route: 048
     Dates: start: 20240615
  4. GABAPENTIN [Suspect]
     Active Substance: GABAPENTIN
     Dosage: 600 MILLIGRAM, BID (TWICE DAILY IN THE EVENING) (1200 MG, QD)
     Dates: start: 20240615
  5. PREGABALIN [Suspect]
     Active Substance: PREGABALIN
     Indication: Product used for unknown indication
     Dosage: 75 MILLIGRAM, QD
     Dates: start: 20240615
  6. PREGABALIN [Suspect]
     Active Substance: PREGABALIN
     Dosage: 75 MILLIGRAM, QD
     Route: 048
     Dates: start: 20240615
  7. PREGABALIN [Suspect]
     Active Substance: PREGABALIN
     Dosage: 75 MILLIGRAM, QD
     Route: 048
     Dates: start: 20240615
  8. PREGABALIN [Suspect]
     Active Substance: PREGABALIN
     Dosage: 75 MILLIGRAM, QD
     Dates: start: 20240615
  9. OXAZEPAM [Suspect]
     Active Substance: OXAZEPAM
     Indication: Product used for unknown indication
     Dosage: 100 MILLIGRAM, QD (LONG-TERM USE)
     Dates: start: 20240615
  10. OXAZEPAM [Suspect]
     Active Substance: OXAZEPAM
     Dosage: 100 MILLIGRAM, QD (LONG-TERM USE)
     Route: 048
     Dates: start: 20240615
  11. OXAZEPAM [Suspect]
     Active Substance: OXAZEPAM
     Dosage: 100 MILLIGRAM, QD (LONG-TERM USE)
     Route: 048
     Dates: start: 20240615
  12. OXAZEPAM [Suspect]
     Active Substance: OXAZEPAM
     Dosage: 100 MILLIGRAM, QD (LONG-TERM USE)
     Dates: start: 20240615

REACTIONS (1)
  - Disturbance in attention [Recovering/Resolving]

NARRATIVE: CASE EVENT DATE: 20250427
